FAERS Safety Report 10094626 (Version 3)
Quarter: 2014Q3

REPORT INFORMATION
  Report Type: Spontaneous
  Country: US (occurrence: None)
  Receive Date: 20140418
  Receipt Date: 20140730
  Transmission Date: 20150326
  Serious: Yes (Other)
  Sender: FDA-Public Use
  Company Number: 2014-US-004286

PATIENT
  Age: 55 Year
  Sex: Male
  Weight: 82.5 kg

DRUGS (6)
  1. BUPROPION (BUPROPION HYDROCHLORIDE) [Concomitant]
  2. TAMSULOSIN (TAMSULOSIN) [Concomitant]
     Active Substance: TAMSULOSIN
  3. METOPROLOL (METOPROLOL TARTRATE) [Concomitant]
     Active Substance: METOPROLOL TARTRATE
  4. CYMBALTA [Concomitant]
     Active Substance: DULOXETINE HYDROCHLORIDE
  5. XYREM [Suspect]
     Active Substance: SODIUM OXYBATE
     Indication: NARCOLEPSY
     Route: 048
     Dates: start: 201302
  6. VYANSE  (LISDEXAMFETAMINE MESILATE) [Concomitant]

REACTIONS (9)
  - Enuresis [None]
  - Gastric bypass [None]
  - Protein total decreased [None]
  - Confusional state [None]
  - Loss of consciousness [None]
  - Tremor [None]
  - Nightmare [None]
  - Dizziness [None]
  - Convulsion [None]

NARRATIVE: CASE EVENT DATE: 20140405
